FAERS Safety Report 5809996-4 (Version None)
Quarter: 2008Q3

REPORT INFORMATION
  Report Type: 
  Country: None (occurrence: None)
  Receive Date: 20080715
  Receipt Date: 20080714
  Transmission Date: 20090109
  Serious: Yes (Hospitalization)
  Sender: FDA-Public Use
  Company Number: SE-WYE-G01856808

PATIENT
  Sex: Male

DRUGS (3)
  1. EFFEXOR [Suspect]
     Indication: DEPRESSION
     Route: 048
     Dates: end: 20080312
  2. ENALAPRIL MALEATE [Concomitant]
     Dosage: 5 MG, DOSE FREQUENCY UNKNOWN
     Route: 048
  3. ATACAND [Concomitant]

REACTIONS (2)
  - DIABETES INSIPIDUS [None]
  - HYPOKALAEMIA [None]
